FAERS Safety Report 5236788-X (Version None)
Quarter: 2007Q1

REPORT INFORMATION
  Report Type: 
  Country: None (occurrence: None)
  Receive Date: 20070213
  Receipt Date: 20070206
  Transmission Date: 20070707
  Serious: Yes (Hospitalization)
  Sender: FDA-Public Use
  Company Number: US-BRISTOL-MYERS SQUIBB COMPANY-13671201

PATIENT
  Age: 49 Year
  Sex: Female

DRUGS (4)
  1. BLINDED: ARIPIPRAZOLE [Suspect]
     Indication: BIPOLAR I DISORDER
     Route: 048
     Dates: start: 20061114
  2. BLINDED: PLACEBO [Suspect]
     Route: 048
     Dates: start: 20061114
  3. BLINDED: LAMICTAL [Suspect]
     Indication: BIPOLAR I DISORDER
     Route: 048
     Dates: start: 20061114
  4. ATIVAN [Concomitant]
     Dates: start: 20061109

REACTIONS (1)
  - DEPRESSION [None]
